FAERS Safety Report 20193698 (Version 2)
Quarter: 2022Q2

REPORT INFORMATION
  Report Type: Spontaneous
  Country: CA (occurrence: CA)
  Receive Date: 20211216
  Receipt Date: 20220527
  Transmission Date: 20220721
  Serious: Yes (Death, Hospitalization, Other)
  Sender: FDA-Public Use
  Company Number: CA-SAMSUNG BIOEPIS-SB-2021-28318

PATIENT
  Age: 72 Year
  Sex: Female
  Weight: 63 kg

DRUGS (2)
  1. INFLIXIMAB [Suspect]
     Active Substance: INFLIXIMAB
     Indication: Rheumatoid arthritis
     Route: 042
  2. METHOTREXATE [Concomitant]
     Active Substance: METHOTREXATE
     Indication: Product used for unknown indication
     Route: 058

REACTIONS (12)
  - Respiratory arrest [Fatal]
  - Bladder disorder [Fatal]
  - Blood pressure systolic increased [Fatal]
  - Malaise [Fatal]
  - Pain [Fatal]
  - Urinary incontinence [Fatal]
  - Weight increased [Fatal]
  - Drug ineffective [Fatal]
  - Therapeutic product effect delayed [Fatal]
  - Inappropriate schedule of product administration [Fatal]
  - Off label use [Fatal]
  - Intentional product use issue [Fatal]
